FAERS Safety Report 10053237 (Version 1)
Quarter: 2014Q2

REPORT INFORMATION
  Report Type: Report from Study
  Country: IE (occurrence: IE)
  Receive Date: 20140402
  Receipt Date: 20140402
  Transmission Date: 20141212
  Serious: Yes (Death)
  Sender: FDA-Public Use
  Company Number: IE-GLAXOSMITHKLINE-B0981843A

PATIENT
  Sex: Female

DRUGS (7)
  1. VOTRIENT [Suspect]
     Indication: SARCOMA UTERUS
     Dosage: 800MG PER DAY
     Route: 048
     Dates: start: 20140227
  2. IMODIUM [Concomitant]
  3. METFORMIN [Concomitant]
  4. VITAMINS B6 [Concomitant]
  5. LANSOPRAZOLE [Concomitant]
  6. INNOHEP [Concomitant]
  7. ATORVASTATIN [Concomitant]

REACTIONS (1)
  - Death [Fatal]
